FAERS Safety Report 4574865-7 (Version None)
Quarter: 2005Q1

REPORT INFORMATION
  Report Type: 
  Country: None (occurrence: None)
  Receive Date: 20050208
  Receipt Date: 20040722
  Transmission Date: 20050727
  Serious: No
  Sender: FDA-Public Use
  Company Number: US-GLAXOSMITHKLINE-A0519409A

PATIENT
  Age: 42 Year
  Sex: Female

DRUGS (5)
  1. PAXIL CR [Suspect]
     Dosage: 10MG PER DAY
     Route: 048
  2. THEOPHYLLINE [Concomitant]
  3. SINGULAIR [Concomitant]
  4. ASACOL [Concomitant]
  5. ADVAIR DISKUS 100/50 [Concomitant]

REACTIONS (2)
  - DEVELOPMENTAL DELAY [None]
  - PARAESTHESIA [None]
